FAERS Safety Report 21986024 (Version 1)
Quarter: 2023Q1

REPORT INFORMATION
  Report Type: Spontaneous
  Country: CY (occurrence: CY)
  Receive Date: 20230213
  Receipt Date: 20230213
  Transmission Date: 20230418
  Serious: Yes (Other)
  Sender: FDA-Public Use
  Company Number: CY-PFIZER INC-PV202300026187

PATIENT

DRUGS (2)
  1. PAXLOVID [Suspect]
     Active Substance: NIRMATRELVIR\RITONAVIR
     Indication: COVID-19 treatment
  2. RIVAROXABAN [Suspect]
     Active Substance: RIVAROXABAN

REACTIONS (1)
  - Gastrointestinal haemorrhage [Unknown]
